FAERS Safety Report 4791859-7 (Version None)
Quarter: 2005Q4

REPORT INFORMATION
  Report Type: 
  Country: None (occurrence: None)
  Receive Date: 20051005
  Receipt Date: 20050926
  Transmission Date: 20060501
  Serious: Yes (Death, Hospitalization)
  Sender: FDA-Public Use
  Company Number: 2005118295

PATIENT
  Age: 70 Year
  Sex: Male

DRUGS (10)
  1. LYRICA [Suspect]
     Indication: NEURALGIA
     Dosage: 150 MG (75 MG, 2 IN 1 D), ORAL
     Route: 048
     Dates: start: 20050811, end: 20050815
  2. HUMULIN N [Concomitant]
  3. ASPILETS (ACETYLSALICYLIC ACID) [Concomitant]
  4. ALL OTHER THERAPEUTIC PRODUCTS (ALL OTHER THERAPEUTIC PRODUCTS) [Concomitant]
  5. PLETAL [Concomitant]
  6. APROVEL (IRBESARTAN) [Concomitant]
  7. HUMULIN R [Concomitant]
  8. CEPHADOL (DIFENIDOL HYDROCHLORIDE) [Concomitant]
  9. ALL OTHER THERAPEUTIC PRODUCTS (ALL OTHER THERAPEUTIC PRODUCTS) [Concomitant]
  10. CRESTOR [Concomitant]

REACTIONS (17)
  - ACUTE MYOCARDIAL INFARCTION [None]
  - ARTERIOSCLEROSIS [None]
  - ASTHENIA [None]
  - CORONARY ARTERY DISEASE [None]
  - DIARRHOEA [None]
  - HAEMOGLOBIN DECREASED [None]
  - HAEMOLYTIC ANAEMIA [None]
  - HYPOAESTHESIA [None]
  - INSULIN-REQUIRING TYPE II DIABETES MELLITUS [None]
  - JAUNDICE [None]
  - METABOLIC ENCEPHALOPATHY [None]
  - NEUROPATHY [None]
  - PALLOR [None]
  - SOMNOLENCE [None]
  - VENTRICULAR FIBRILLATION [None]
  - VENTRICULAR TACHYCARDIA [None]
  - VOMITING [None]
